FAERS Safety Report 5979539-3 (Version None)
Quarter: 2008Q4

REPORT INFORMATION
  Report Type: 
  Country: None (occurrence: None)
  Receive Date: 20081204
  Receipt Date: 20081202
  Transmission Date: 20090506
  Serious: Yes (Other)
  Sender: FDA-Public Use
  Company Number: JP-B.I. PHARMACEUTICALS,INC./RIDGEFIELD-2008-BP-14124NB

PATIENT
  Sex: Female
  Weight: 66 kg

DRUGS (4)
  1. MICARDIS [Suspect]
     Indication: HYPERTENSION
     Dosage: 20MG
     Route: 048
     Dates: start: 20060622
  2. FLUITRAN [Concomitant]
     Indication: OEDEMA PERIPHERAL
     Dosage: 1MG
     Route: 048
     Dates: start: 20070608
  3. ADALAT CC [Concomitant]
     Indication: HYPERTENSION
     Dosage: 20MG
     Route: 048
  4. LIPITOR [Concomitant]
     Indication: HYPERCHOLESTEROLAEMIA
     Dosage: 5MG
     Route: 048

REACTIONS (1)
  - TRANSIENT ISCHAEMIC ATTACK [None]
